FAERS Safety Report 8718296 (Version 2)
Quarter: 2012Q4

REPORT INFORMATION
  Report Type: 
  Country: US (occurrence: US)
  Receive Date: 20120810
  Receipt Date: 20121030
  Transmission Date: 20130627
  Serious: No
  Sender: FDA-Public Use
  Company Number: US-009507513-1208USA004069

PATIENT
  Sex: Female

DRUGS (1)
  1. CLARITIN ORAL SOLUTION [Suspect]
     Indication: PRODUCT USED FOR UNKNOWN INDICATION
     Dosage: UNK, Unknown
     Route: 048
     Dates: start: 201207

REACTIONS (1)
  - Sleep terror [Recovered/Resolved]
